FAERS Safety Report 4994147-9 (Version None)
Quarter: 2006Q2

REPORT INFORMATION
  Report Type: 
  Country: None (occurrence: None)
  Receive Date: 20060503
  Receipt Date: 20060421
  Transmission Date: 20061013
  Serious: Yes (Death, Life-Threatening)
  Sender: FDA-Public Use
  Company Number: 2006JP001007

PATIENT
  Age: 63 Year
  Sex: Female
  Weight: 48.6 kg

DRUGS (3)
  1. PROGRAF [Suspect]
     Indication: BONE MARROW TRANSPLANT
     Dosage: 1.44 MG, UID/QD, IV DRIP
     Route: 041
     Dates: start: 20040419, end: 20040425
  2. FLUDARABINE PHOSPHATE [Concomitant]
  3. MELPHALAN                (MELPHALAN) [Concomitant]

REACTIONS (3)
  - CARDIAC FAILURE [None]
  - HAEMODIALYSIS [None]
  - STAPHYLOCOCCAL SEPSIS [None]
